FAERS Safety Report 5400337-3 (Version None)
Quarter: 2007Q3

REPORT INFORMATION
  Report Type: 
  Country: None (occurrence: None)
  Receive Date: 20070730
  Receipt Date: 20070723
  Transmission Date: 20080115
  Serious: Yes (Other)
  Sender: FDA-Public Use
  Company Number: A0663728A

PATIENT
  Age: 65 Year
  Sex: Female
  Weight: 59.1 kg

DRUGS (1)
  1. LAMICTAL [Suspect]
     Indication: DRUG USE FOR UNKNOWN INDICATION
     Dosage: 175MGD PER DAY
     Route: 065
     Dates: start: 20061011

REACTIONS (9)
  - BALANCE DISORDER [None]
  - BREAST ENGORGEMENT [None]
  - BREAST SWELLING [None]
  - CLUMSINESS [None]
  - DISTURBANCE IN ATTENTION [None]
  - FEELING DRUNK [None]
  - GAIT DISTURBANCE [None]
  - MEMORY IMPAIRMENT [None]
  - URINARY INCONTINENCE [None]
